FAERS Safety Report 5339624-6 (Version None)
Quarter: 2007Q2

REPORT INFORMATION
  Report Type: 
  Country: None (occurrence: None)
  Receive Date: 20070525
  Receipt Date: 20070525
  Transmission Date: 20071010
  Serious: Yes (Other)
  Sender: FDA-Public Use
  Company Number: None

PATIENT
  Age: 60 Year
  Sex: Female

DRUGS (1)
  1. PHENYTOIN [Suspect]
     Indication: CONVULSION
     Dosage: IV
     Route: 042
     Dates: start: 20061230, end: 20070121

REACTIONS (2)
  - GRAND MAL CONVULSION [None]
  - LUNG NEOPLASM MALIGNANT [None]
